FAERS Safety Report 10207265 (Version 1)
Quarter: 2014Q2

REPORT INFORMATION
  Report Type: Spontaneous
  Country: US (occurrence: US)
  Receive Date: 20140530
  Receipt Date: 20140530
  Transmission Date: 20141212
  Serious: No
  Sender: FDA-Public Use
  Company Number: US-GLAXOSMITHKLINE-A1027732A

PATIENT
  Sex: Male

DRUGS (1)
  1. VENTOLIN [Suspect]
     Indication: LARYNGITIS
     Dosage: 2PUFF SEE DOSAGE TEXT
     Route: 055
     Dates: start: 20130427

REACTIONS (1)
  - Drug ineffective [Unknown]
